FAERS Safety Report 4415582-3 (Version None)
Quarter: 2004Q2

REPORT INFORMATION
  Report Type: 
  Country: None (occurrence: None)
  Receive Date: 20040621
  Receipt Date: 20031201
  Transmission Date: 20050107
  Serious: Yes (Death)
  Sender: FDA-Public Use
  Company Number: USA-2003-0011699

PATIENT
  Age: 41 Year
  Sex: Male

DRUGS (6)
  1. OXYCODONE HCL [Suspect]
  2. ALPRAZOLAM [Suspect]
  3. ACETAMINOPHEN [Suspect]
  4. FLUCONAZOLE [Suspect]
  5. PROMETHAZINE [Suspect]
  6. TRIMETHOPRIM [Suspect]

REACTIONS (2)
  - INTENTIONAL OVERDOSE [None]
  - MULTIPLE DRUG OVERDOSE [None]
